FAERS Safety Report 18658759 (Version 1)
Quarter: 2020Q4

REPORT INFORMATION
  Report Type: Spontaneous
  Country: US (occurrence: US)
  Receive Date: 20201223
  Receipt Date: 20201223
  Transmission Date: 20210114
  Serious: No
  Sender: FDA-Public Use
  Company Number: US-SAREPTA THERAPEUTICS INC.-SRP2020-000838

PATIENT
  Age: 21 Year
  Sex: Male

DRUGS (1)
  1. VYONDYS 53 [Suspect]
     Active Substance: GOLODIRSEN
     Indication: PRODUCT USED FOR UNKNOWN INDICATION
     Dosage: 1400 MG, WEEKLY
     Route: 042

REACTIONS (3)
  - Catheter site discolouration [Unknown]
  - Intentional dose omission [Unknown]
  - Catheter site infection [Unknown]

NARRATIVE: CASE EVENT DATE: 20200727
